FAERS Safety Report 9158503 (Version 1)
Quarter: 2013Q1

REPORT INFORMATION
  Report Type: Report from Study
  Country: DE (occurrence: DE)
  Receive Date: 20130312
  Receipt Date: 20130312
  Transmission Date: 20140127
  Serious: Yes (Hospitalization)
  Sender: FDA-Public Use
  Company Number: DE-ABBOTT-13P-062-1058886-00

PATIENT
  Sex: Male

DRUGS (2)
  1. HUMIRA [Suspect]
     Indication: PSORIATIC ARTHROPATHY
     Route: 058
     Dates: start: 20071001, end: 2012
  2. HUMIRA [Suspect]
     Route: 058
     Dates: start: 2012

REACTIONS (2)
  - Tendon injury [Recovering/Resolving]
  - Impaired healing [Recovering/Resolving]
